FAERS Safety Report 15326319 (Version 1)
Quarter: 2018Q3

REPORT INFORMATION
  Report Type: Spontaneous
  Country: US (occurrence: US)
  Receive Date: 20180823
  Receipt Date: 20180823
  Transmission Date: 20181010
  Serious: Yes (Life-Threatening, Hospitalization, Other)
  Sender: FDA-Public Use
  Company Number: None

PATIENT
  Age: 65 Year
  Sex: Male
  Weight: 104.33 kg

DRUGS (1)
  1. IMIQUIMOD 5% CREAM SINGLE USE PACKETS [Suspect]
     Active Substance: IMIQUIMOD
     Indication: SQUAMOUS CELL CARCINOMA OF SKIN
     Dosage: OTHER FREQUENCY:EVERY OTHER NIGHT;?
     Route: 065
     Dates: start: 20180406

REACTIONS (2)
  - Respiratory failure [None]
  - Angioedema [None]

NARRATIVE: CASE EVENT DATE: 20180803
